FAERS Safety Report 12613417 (Version 1)
Quarter: 2016Q3

REPORT INFORMATION
  Report Type: Spontaneous
  Country: US (occurrence: None)
  Receive Date: 20160801
  Receipt Date: 20160801
  Transmission Date: 20161109
  Serious: Yes (Disabling)
  Sender: FDA-Public Use
  Company Number: None

PATIENT
  Age: 59 Year
  Sex: Female
  Weight: 99.79 kg

DRUGS (11)
  1. CLACIUM [Concomitant]
  2. CLARINEX [Concomitant]
     Active Substance: DESLORATADINE
  3. MAGNESIUM [Concomitant]
     Active Substance: MAGNESIUM
  4. SINGULAIR [Concomitant]
     Active Substance: MONTELUKAST SODIUM
  5. MULTI-VITAMIN [Concomitant]
     Active Substance: .ALPHA.-TOCOPHEROL ACETATE, DL-\ASCORBIC ACID\CYANOCOBALAMIN\FLUORIDE ION\FOLIC ACID\NIACIN\PYRIDOXINE\RIBOFLAVIN\THIAMINE\VITAMIN A\VITAMIN D
  6. VITAMIN D [Concomitant]
     Active Substance: CHOLECALCIFEROL
  7. DEXILANT [Concomitant]
     Active Substance: DEXLANSOPRAZOLE
  8. PROBIOTIC [Concomitant]
     Active Substance: PROBIOTICS NOS
  9. LEVOFLOXACIN 500 MG, 500 MG [Suspect]
     Active Substance: LEVOFLOXACIN
     Indication: CYSTITIS
     Route: 048
     Dates: start: 20150730, end: 20150806
  10. CYMBALTA [Concomitant]
     Active Substance: DULOXETINE HYDROCHLORIDE
  11. ADVAIR HFA [Concomitant]
     Active Substance: FLUTICASONE PROPIONATE\SALMETEROL XINAFOATE

REACTIONS (8)
  - Muscle twitching [None]
  - Hypoaesthesia [None]
  - Arthralgia [None]
  - Neuralgia [None]
  - Pain [None]
  - Carpal tunnel syndrome [None]
  - Asthenia [None]
  - Muscle atrophy [None]

NARRATIVE: CASE EVENT DATE: 20150730
